FAERS Safety Report 4699780-X (Version None)
Quarter: 2005Q2

REPORT INFORMATION
  Report Type: 
  Country: None (occurrence: None)
  Receive Date: 20050623
  Receipt Date: 20050617
  Transmission Date: 20051028
  Serious: Yes (Hospitalization)
  Sender: FDA-Public Use
  Company Number: 2005BH000247

PATIENT
  Age: 83 Year
  Sex: Male

DRUGS (11)
  1. VANCOMYCIN HCL [Suspect]
     Dosage: 500 MG; 4X A WEEK; IV
     Route: 042
     Dates: start: 20050523
  2. COUMADIN [Concomitant]
  3. LOPRESSOR [Concomitant]
  4. LASIX [Concomitant]
  5. ZAROXOLYN [Concomitant]
  6. KLOR-CON [Concomitant]
  7. FLOMAX [Concomitant]
  8. MILK OF MAGNESIA [Concomitant]
  9. FLEETS ENEMA [Concomitant]
  10. TYLENOL [Concomitant]
  11. VICODIN [Concomitant]

REACTIONS (9)
  - CHILLS [None]
  - HEART RATE INCREASED [None]
  - HYPOTENSION [None]
  - INCORRECT DRUG ADMINISTRATION RATE [None]
  - OVERDOSE [None]
  - POSTOPERATIVE INFECTION [None]
  - RED MAN SYNDROME [None]
  - STAPHYLOCOCCAL INFECTION [None]
  - TREMOR [None]
